FAERS Safety Report 7320462-X (Version None)
Quarter: 2011Q1

REPORT INFORMATION
  Report Type: 
  Country: None (occurrence: None)
  Receive Date: 20110228
  Receipt Date: 20110218
  Transmission Date: 20110831
  Serious: Yes (Life-Threatening)
  Sender: FDA-Public Use
  Company Number: B0701303A

PATIENT
  Sex: Female
  Weight: 58 kg

DRUGS (12)
  1. TAKEPRON [Concomitant]
     Dosage: 30MG PER DAY
     Route: 048
     Dates: start: 20101117
  2. ALKERAN [Suspect]
     Indication: STEM CELL TRANSPLANT
     Dosage: 150MG PER DAY
     Route: 042
     Dates: start: 20101108, end: 20101109
  3. SOLU-CORTEF [Concomitant]
     Indication: STEM CELL TRANSPLANT
     Dosage: 100MG PER DAY
     Dates: start: 20101111, end: 20101111
  4. NEUTROGIN [Concomitant]
     Route: 042
     Dates: start: 20101116, end: 20101122
  5. MUCODYNE [Concomitant]
     Dosage: 750MG PER DAY
     Route: 048
     Dates: start: 20101018, end: 20101110
  6. PRIMPERAN TAB [Concomitant]
     Dates: start: 20101109, end: 20101109
  7. VFEND [Concomitant]
     Dosage: 400MG PER DAY
     Route: 048
     Dates: start: 20101021, end: 20101110
  8. RESPLEN [Concomitant]
     Dosage: 60MG PER DAY
     Route: 048
     Dates: start: 20101018, end: 20101110
  9. AMOBAN [Concomitant]
     Dosage: 10MG PER DAY
     Route: 048
     Dates: start: 20090222
  10. CRAVIT [Concomitant]
     Dosage: 500MG PER DAY
     Route: 048
     Dates: start: 20101018, end: 20101110
  11. VICCLOX [Concomitant]
     Dosage: 1000MG PER DAY
     Route: 048
     Dates: start: 20101105, end: 20101110
  12. FUROSEMIDE [Concomitant]
     Dosage: 20MG PER DAY
     Route: 042
     Dates: start: 20101108, end: 20101109

REACTIONS (1)
  - SEPSIS [None]
